FAERS Safety Report 21729781 (Version 2)
Quarter: 2022Q4

REPORT INFORMATION
  Report Type: Spontaneous
  Country: DE (occurrence: DE)
  Receive Date: 20221214
  Receipt Date: 20221229
  Transmission Date: 20230112
  Serious: Yes (Hospitalization, Other)
  Sender: FDA-Public Use
  Company Number: DE-009507513-2212DEU004777

PATIENT
  Sex: Female
  Weight: 54 kg

DRUGS (2)
  1. KEYTRUDA [Suspect]
     Active Substance: PEMBROLIZUMAB
     Indication: Malignant melanoma
     Dosage: NORMAL DOSE, Q3W
     Route: 042
     Dates: start: 202112, end: 202208
  2. KEYTRUDA [Suspect]
     Active Substance: PEMBROLIZUMAB
     Dosage: DOUBLE DOSE, EVERY 6 WEEKS/400 MG EVERY 6 WEEKS
     Dates: start: 202208, end: 202209

REACTIONS (4)
  - Ascites [Recovering/Resolving]
  - Gastroenteritis clostridial [Recovered/Resolved]
  - Chylothorax [Recovering/Resolving]
  - Myalgia [Recovered/Resolved]

NARRATIVE: CASE EVENT DATE: 20220101
